FAERS Safety Report 23684577 (Version 2)
Quarter: 2024Q2

REPORT INFORMATION
  Report Type: Spontaneous
  Country: PH (occurrence: PH)
  Receive Date: 20240328
  Receipt Date: 20240411
  Transmission Date: 20240716
  Serious: Yes (Death, Other)
  Sender: FDA-Public Use
  Company Number: PH-BoehringerIngelheim-2024-BI-017510

PATIENT
  Age: 59 Year
  Sex: Male
  Weight: 49 kg

DRUGS (1)
  1. OFEV [Suspect]
     Active Substance: NINTEDANIB
     Indication: Interstitial lung disease
     Route: 048
     Dates: start: 20231202, end: 20240323

REACTIONS (9)
  - Acute respiratory failure [Fatal]
  - Cardio-respiratory arrest [Fatal]
  - Acute coronary syndrome [Fatal]
  - Acute myocardial infarction [Fatal]
  - Coma [Unknown]
  - Pain [Unknown]
  - Asthenia [Unknown]
  - Dyspnoea [Unknown]
  - Angina pectoris [Unknown]

NARRATIVE: CASE EVENT DATE: 20240323
